FAERS Safety Report 7101641-3 (Version None)
Quarter: 2010Q4

REPORT INFORMATION
  Report Type: 
  Country: None (occurrence: None)
  Receive Date: 20101115
  Receipt Date: 20101101
  Transmission Date: 20110411
  Serious: Yes (Hospitalization, Other)
  Sender: FDA-Public Use
  Company Number: US-BAYER-200935705NA

PATIENT
  Age: 26 Year
  Sex: Female
  Weight: 109 kg

DRUGS (11)
  1. YASMIN [Suspect]
     Indication: MENSTRUAL CYCLE MANAGEMENT
     Route: 048
  2. YAZ [Suspect]
     Indication: MENSTRUAL CYCLE MANAGEMENT
     Route: 048
  3. OCELLA [Suspect]
     Indication: MENSTRUAL CYCLE MANAGEMENT
     Route: 048
  4. ALBUTEROL [Concomitant]
  5. EXCEDRIN (MIGRAINE) [Concomitant]
  6. IBUPROFEN [Concomitant]
  7. ASCORBIC ACID [Concomitant]
  8. PHENOBARBITAL TAB [Concomitant]
     Indication: CONVULSION
     Dosage: NIGHT
     Route: 065
  9. PHENOBARBITAL TAB [Concomitant]
     Dosage: MORNING
     Route: 065
  10. MECLIZINE [Concomitant]
  11. NEXIUM [Concomitant]
     Indication: GASTROOESOPHAGEAL REFLUX DISEASE
     Route: 065

REACTIONS (3)
  - CHOLECYSTITIS CHRONIC [None]
  - CHOLELITHIASIS [None]
  - EPILEPSY [None]
